FAERS Safety Report 5221201-9 (Version None)
Quarter: 2007Q1

REPORT INFORMATION
  Report Type: 
  Country: None (occurrence: None)
  Receive Date: 20070126
  Receipt Date: 20070124
  Transmission Date: 20070707
  Serious: Yes (Other)
  Sender: FDA-Public Use
  Company Number: GB-BOEHRINGER INGELHEIM PHARMACEUTICALS, INC.-2007-UK-00292UK

PATIENT
  Age: 80 Year
  Sex: Male
  Weight: 50 kg

DRUGS (14)
  1. TIOTROPIUM (00015/0190/A) [Suspect]
     Indication: CHRONIC OBSTRUCTIVE PULMONARY DISEASE
     Route: 055
     Dates: start: 20070105, end: 20070108
  2. ALENDRONIC ACID [Concomitant]
     Dosage: ONCE A WEEK
  3. AMITRIPTYLINE HCL [Concomitant]
  4. AMOXICILLIN [Concomitant]
  5. CARBOCYSTEINE [Concomitant]
  6. CLEXANE [Concomitant]
  7. FRUSEMIDE [Concomitant]
  8. LANSOPRAZOLE [Concomitant]
  9. MOVICOL [Concomitant]
     Dosage: 1DF BD
  10. NYSTATIN [Concomitant]
  11. PREDNISOLONE [Concomitant]
  12. SALBUTAMOL [Concomitant]
     Dosage: PRN
  13. SERETIDE [Concomitant]
     Dosage: 1DF BD
  14. SLO-PHYLLIN [Concomitant]

REACTIONS (2)
  - MOUTH ULCERATION [None]
  - TONGUE ULCERATION [None]
